FAERS Safety Report 5175905-7 (Version None)
Quarter: 2006Q4

REPORT INFORMATION
  Report Type: 
  Country: None (occurrence: None)
  Receive Date: 20061215
  Receipt Date: 20061211
  Transmission Date: 20070319
  Serious: Yes (Hospitalization, Disabling)
  Sender: FDA-Public Use
  Company Number: ES-GLAXOSMITHKLINE-B0450591A

PATIENT
  Age: 83 Year
  Sex: Female

DRUGS (1)
  1. AUGMENTIN '125' [Suspect]
     Indication: CELLULITIS
     Dosage: 1G TWICE PER DAY
     Route: 042
     Dates: start: 20051027, end: 20051104

REACTIONS (4)
  - ANOREXIA [None]
  - ASTHENIA [None]
  - HEPATITIS CHOLESTATIC [None]
  - PRURITUS [None]
